FAERS Safety Report 4355934-3 (Version None)
Quarter: 2004Q2

REPORT INFORMATION
  Report Type: 
  Country: None (occurrence: None)
  Receive Date: 20040510
  Receipt Date: 20040331
  Transmission Date: 20050107
  Serious: Yes (Other)
  Sender: FDA-Public Use
  Company Number: 2143

PATIENT
  Age: 21 Year
  Sex: Male
  Weight: 70.3075 kg

DRUGS (5)
  1. CHLOROQUINE PHOSPHATE [Suspect]
     Indication: BIPOLAR DISORDER
     Dosage: 1 TABLET ORAL
     Route: 048
     Dates: start: 20040229, end: 20040307
  2. CHLOROQUINE PHOSPHATE [Suspect]
     Indication: FOREIGN TRAVEL
     Dosage: 1 TABLET ORAL
     Route: 048
     Dates: start: 20040229, end: 20040307
  3. CHLOROQUINE PHOSPHATE [Suspect]
     Indication: PROPHYLAXIS
     Dosage: 1 TABLET ORAL
     Route: 048
     Dates: start: 20040229, end: 20040307
  4. DEPAKOTE [Suspect]
     Dosage: 1000 MG PER DAY
  5. MAINTENANCE LEVEL [Concomitant]

REACTIONS (1)
  - ADVERSE DRUG REACTION [None]
